FAERS Safety Report 4893374-9 (Version None)
Quarter: 2006Q1

REPORT INFORMATION
  Report Type: 
  Country: None (occurrence: None)
  Receive Date: 20060124
  Receipt Date: 20060112
  Transmission Date: 20060701
  Serious: Yes (Hospitalization)
  Sender: FDA-Public Use
  Company Number: 2005PV005174

PATIENT
  Age: 74 Year
  Sex: Female

DRUGS (3)
  1. BYETTA [Suspect]
     Indication: DIABETES MELLITUS NON-INSULIN-DEPENDENT
     Dosage: 5 MCG; BID; SC
     Route: 058
  2. LANTUS [Suspect]
     Dosage: SEE IMAGE
  3. PRANDIN [Concomitant]

REACTIONS (10)
  - ASTHENIA [None]
  - DIZZINESS [None]
  - GLYCOSYLATED HAEMOGLOBIN INCREASED [None]
  - HAEMOGLOBIN DECREASED [None]
  - HYPERGLYCAEMIA [None]
  - HYPOGLYCAEMIA [None]
  - NAUSEA [None]
  - SOMOGYI PHENOMENON [None]
  - SYNCOPE [None]
  - TREATMENT NONCOMPLIANCE [None]
